FAERS Safety Report 6602212-5 (Version None)
Quarter: 2010Q1

REPORT INFORMATION
  Report Type: 
  Country: None (occurrence: None)
  Receive Date: 20100218
  Receipt Date: 20100204
  Transmission Date: 20100710
  Serious: Yes (Death, Life-Threatening, Hospitalization)
  Sender: FDA-Public Use
  Company Number: A-US2010-33177

PATIENT
  Age: 66 Year
  Sex: Male

DRUGS (1)
  1. TRACLEER [Suspect]
     Indication: PULMONARY ARTERIAL HYPERTENSION
     Dosage: MG, ORAL
     Route: 048
     Dates: start: 20060310, end: 20100209

REACTIONS (5)
  - COLON CANCER [None]
  - DECREASED APPETITE [None]
  - POST PROCEDURAL COMPLICATION [None]
  - SEPSIS [None]
  - WEIGHT DECREASED [None]
